FAERS Safety Report 4879712-1 (Version None)
Quarter: 2006Q1

REPORT INFORMATION
  Report Type: 
  Country: None (occurrence: None)
  Receive Date: 20060113
  Receipt Date: 20060110
  Transmission Date: 20060701
  Serious: Yes (Hospitalization, Other)
  Sender: FDA-Public Use
  Company Number: JP-SP-2006-00099

PATIENT
  Age: 89 Year
  Sex: Male

DRUGS (1)
  1. IMMUCYST [Suspect]
     Indication: BLADDER CANCER
     Route: 043

REACTIONS (3)
  - EPIDIDYMITIS [None]
  - PYREXIA [None]
  - RENAL IMPAIRMENT [None]
